FAERS Safety Report 7861362-6 (Version None)
Quarter: 2011Q4

REPORT INFORMATION
  Report Type: 
  Country: None (occurrence: None)
  Receive Date: 20111027
  Receipt Date: 20111018
  Transmission Date: 20120403
  Serious: Yes (Other)
  Sender: FDA-Public Use
  Company Number: ES-PFIZER INC-2011246572

PATIENT
  Age: 82 Year
  Sex: Female

DRUGS (1)
  1. AMIODARONE HCL [Suspect]
     Indication: ATRIAL FIBRILLATION
     Dosage: 200 MG TABLET, DOSE UNSPECIFIED
     Route: 048
     Dates: start: 20110101, end: 20110101

REACTIONS (2)
  - HYPERBILIRUBINAEMIA [None]
  - HYPERTHYROIDISM [None]
